FAERS Safety Report 6041696-0 (Version None)
Quarter: 2009Q1

REPORT INFORMATION
  Report Type: 
  Country: None (occurrence: None)
  Receive Date: 20090116
  Receipt Date: 20080915
  Transmission Date: 20090719
  Serious: Yes (Life-Threatening)
  Sender: FDA-Public Use
  Company Number: US-BRISTOL-MYERS SQUIBB COMPANY-14336549

PATIENT
  Age: 8 Decade
  Sex: Male

DRUGS (3)
  1. ABILIFY [Suspect]
     Indication: DELUSION
  2. ABILIFY [Suspect]
     Indication: PARANOIA
  3. ABILIFY [Suspect]
     Indication: AGGRESSION

REACTIONS (1)
  - HAEMORRHAGIC STROKE [None]
